FAERS Safety Report 13698431 (Version 1)
Quarter: 2017Q2

REPORT INFORMATION
  Report Type: Spontaneous
  Country: US (occurrence: US)
  Receive Date: 20170628
  Receipt Date: 20170628
  Transmission Date: 20170830
  Serious: Yes (Other)
  Sender: FDA-Public Use
  Company Number: US-BAYER-2017-121013

PATIENT
  Sex: Female

DRUGS (3)
  1. AVONEX [Suspect]
     Active Substance: INTERFERON BETA-1A
     Dosage: UNK
  2. REBIF [Suspect]
     Active Substance: INTERFERON BETA-1A
     Dosage: UNK
  3. BETASERON [Suspect]
     Active Substance: INTERFERON BETA-1B
     Indication: MULTIPLE SCLEROSIS
     Dosage: UNK

REACTIONS (9)
  - Dizziness [Recovering/Resolving]
  - Multiple sclerosis [None]
  - Multiple sclerosis plaque [None]
  - Ear discomfort [None]
  - Headache [None]
  - Dizziness [None]
  - Sneezing [None]
  - Visual impairment [None]
  - Injection site ulcer [None]

NARRATIVE: CASE EVENT DATE: 2017
